FAERS Safety Report 14601058 (Version 2)
Quarter: 2018Q1

REPORT INFORMATION
  Report Type: Report from Study
  Country: US (occurrence: US)
  Receive Date: 20180305
  Receipt Date: 20180329
  Transmission Date: 20180509
  Serious: Yes (Death, Hospitalization)
  Sender: FDA-Public Use
  Company Number: US-ACTELION-A-NJ2018-168108

PATIENT
  Age: 73 Year
  Sex: Female
  Weight: 49.89 kg

DRUGS (4)
  1. VELETRI [Suspect]
     Active Substance: EPOPROSTENOL
     Indication: PULMONARY ARTERIAL HYPERTENSION
     Dosage: 23.8 NG/KG, PER MIN
     Route: 042
  2. ORENITRAM [Concomitant]
     Active Substance: TREPROSTINIL
     Dosage: 9 MG, TID
  3. REVATIO [Concomitant]
     Active Substance: SILDENAFIL CITRATE
  4. OPSUMIT [Suspect]
     Active Substance: MACITENTAN
     Indication: PULMONARY ARTERIAL HYPERTENSION
     Dosage: 10 MG, QD
     Route: 048
     Dates: start: 20150608, end: 20180223

REACTIONS (8)
  - General physical health deterioration [Unknown]
  - Dyspnoea exertional [Unknown]
  - Flushing [Unknown]
  - Diarrhoea [Unknown]
  - Muscular weakness [Unknown]
  - Pulmonary hypertension [Fatal]
  - Condition aggravated [Fatal]
  - Atrioventricular block [Unknown]

NARRATIVE: CASE EVENT DATE: 20180205
